FAERS Safety Report 9669938 (Version 3)
Quarter: 2015Q2

REPORT INFORMATION
  Report Type: Spontaneous
  Country: US (occurrence: US)
  Receive Date: 20131105
  Receipt Date: 20150519
  Transmission Date: 20150821
  Serious: Yes (Hospitalization, Other)
  Sender: FDA-Public Use
  Company Number: US-GLAXOSMITHKLINE-A1029938A

PATIENT
  Sex: Male

DRUGS (2)
  1. VOTRIENT [Suspect]
     Active Substance: PAZOPANIB HYDROCHLORIDE
     Indication: THYROID CANCER
     Dosage: 200 MG
     Route: 065
     Dates: start: 20130503
  2. CHEMOTHERAPY [Suspect]
     Active Substance: UNSPECIFIED INGREDIENT
     Indication: THYROID CANCER
     Dosage: UNKNOWN

REACTIONS (7)
  - Thyroid neoplasm [Unknown]
  - Speech disorder [Unknown]
  - Pharyngeal disorder [Unknown]
  - Dysphonia [Not Recovered/Not Resolved]
  - Hospitalisation [Unknown]
  - Pharyngeal operation [Unknown]
  - Laryngeal injury [Unknown]
